FAERS Safety Report 6666372-2 (Version None)
Quarter: 2010Q1

REPORT INFORMATION
  Report Type: 
  Country: None (occurrence: None)
  Receive Date: 20100331
  Receipt Date: 20100323
  Transmission Date: 20100710
  Serious: Yes (Other)
  Sender: FDA-Public Use
  Company Number: TPA2010A01330

PATIENT
  Age: 50 Year
  Sex: Female

DRUGS (4)
  1. KAPIDEX [Suspect]
     Dosage: PER ORAL
     Route: 048
  2. AVELOX [Suspect]
     Dates: start: 20100323
  3. CELEBREX [Suspect]
  4. AVALIDE [Concomitant]

REACTIONS (5)
  - ANAPHYLACTIC REACTION [None]
  - DRUG INTERACTION [None]
  - ERYTHEMA [None]
  - HYPERHIDROSIS [None]
  - PRURITUS [None]
